FAERS Safety Report 14516725 (Version 1)
Quarter: 2018Q1

REPORT INFORMATION
  Report Type: Spontaneous
  Country: US (occurrence: US)
  Receive Date: 20180212
  Receipt Date: 20180212
  Transmission Date: 20180509
  Serious: Yes (Death, Other)
  Sender: FDA-Public Use
  Company Number: US-AMGEN-USASP2017072638

PATIENT
  Age: 90 Year
  Sex: Male

DRUGS (2)
  1. PANITUMUMAB [Suspect]
     Active Substance: PANITUMUMAB
     Dosage: 6 MG/KG, Q2WK
     Route: 065
  2. PANITUMUMAB [Suspect]
     Active Substance: PANITUMUMAB
     Indication: ADENOCARCINOMA OF COLON
     Dosage: 6 MG/KG, Q2WK
     Route: 065

REACTIONS (3)
  - Ectropion [Recovered/Resolved]
  - Keratitis [Recovered/Resolved]
  - Adenocarcinoma of colon [Fatal]
